FAERS Safety Report 7852086-X (Version None)
Quarter: 2011Q3

REPORT INFORMATION
  Report Type: 
  Country: None (occurrence: None)
  Receive Date: 20110906
  Receipt Date: 20110701
  Transmission Date: 20111222
  Serious: No
  Sender: FDA-Public Use
  Company Number: 201106032

PATIENT
  Age: 61 Year
  Sex: Male

DRUGS (4)
  1. XIAFLEX [Suspect]
     Indication: DUPUYTREN'S CONTRACTURE
     Dosage: 0.58 MG, 1 IN 1 D, INTRALESIONAL
     Route: 026
     Dates: start: 20110609, end: 20110609
  2. MAGNESIUM (MAGNESIUM) [Concomitant]
  3. LISINOPRIL [Concomitant]
  4. INSULIN (INSULIN) [Concomitant]

REACTIONS (1)
  - DRUG INEFFECTIVE [None]
